FAERS Safety Report 5685534-4 (Version None)
Quarter: 2008Q1

REPORT INFORMATION
  Report Type: 
  Country: None (occurrence: None)
  Receive Date: 20080328
  Receipt Date: 20080318
  Transmission Date: 20080703
  Serious: Yes (Hospitalization)
  Sender: FDA-Public Use
  Company Number: TW-PFIZER INC-2008015098

PATIENT
  Sex: Female
  Weight: 48 kg

DRUGS (11)
  1. SU-011,248 [Suspect]
     Indication: GASTROINTESTINAL STROMAL TUMOUR
     Route: 048
  2. SU-011,248 [Suspect]
     Route: 048
     Dates: start: 20060313, end: 20080211
  3. MYCOSTATIN [Concomitant]
     Route: 061
  4. MEDROXYPROGESTERONE ACETATE [Concomitant]
     Route: 048
  5. ALPRAZOLAM [Concomitant]
     Route: 048
  6. ACETAMINOPHEN [Concomitant]
     Route: 048
  7. CHLORZOXAZONE [Concomitant]
     Route: 048
  8. MAGNESIUM OXIDE [Concomitant]
     Route: 048
  9. DEXTROMETHORPHAN HYDROBROMIDE [Concomitant]
     Route: 048
  10. INDOMETHACIN [Concomitant]
     Route: 061
  11. LORAZEPAM [Concomitant]
     Route: 048

REACTIONS (17)
  - ANAEMIA [None]
  - BONE MARROW FAILURE [None]
  - GASTROINTESTINAL STROMAL TUMOUR [None]
  - HAEMATOCHEZIA [None]
  - HYPOGLYCAEMIA [None]
  - HYPONATRAEMIA [None]
  - HYPOTHERMIA [None]
  - HYPOTHYROIDISM [None]
  - LARYNGEAL OEDEMA [None]
  - LEUKOPENIA [None]
  - MYXOEDEMA COMA [None]
  - PALMAR-PLANTAR ERYTHRODYSAESTHESIA SYNDROME [None]
  - PNEUMONIA [None]
  - RECURRENT CANCER [None]
  - REFLUX OESOPHAGITIS [None]
  - SINUS BRADYCARDIA [None]
  - THROMBOCYTOPENIA [None]
